FAERS Safety Report 7628560-8 (Version None)
Quarter: 2011Q3

REPORT INFORMATION
  Report Type: 
  Country: None (occurrence: None)
  Receive Date: 20110722
  Receipt Date: 20110510
  Transmission Date: 20111222
  Serious: Yes (Other)
  Sender: FDA-Public Use
  Company Number: US-MYLANLABS-2011S1009795

PATIENT
  Age: 41 Year
  Sex: Female
  Weight: 81.65 kg

DRUGS (4)
  1. XANAX [Concomitant]
     Indication: INSOMNIA
     Dates: start: 20090101
  2. BUPROPION HYDROCHLORIDE [Suspect]
     Indication: SEASONAL AFFECTIVE DISORDER
     Route: 048
     Dates: start: 20110401, end: 20110409
  3. PRILOSEC [Concomitant]
     Indication: GASTROOESOPHAGEAL REFLUX DISEASE
     Dates: start: 20090101
  4. COREG [Concomitant]
     Indication: BLOOD PRESSURE INCREASED
     Dates: start: 20100401

REACTIONS (6)
  - HALLUCINATION [None]
  - ANXIETY [None]
  - WEIGHT DECREASED [None]
  - ANGER [None]
  - INSOMNIA [None]
  - DECREASED APPETITE [None]
